FAERS Safety Report 5148056-5 (Version None)
Quarter: 2006Q4

REPORT INFORMATION
  Report Type: 
  Country: None (occurrence: None)
  Receive Date: 20061110
  Receipt Date: 20061108
  Transmission Date: 20070319
  Serious: Yes (Death)
  Sender: FDA-Public Use
  Company Number: AU-BRISTOL-MYERS SQUIBB COMPANY-13570023

PATIENT
  Age: 14 Year
  Sex: Female

DRUGS (3)
  1. ETOPOSIDE [Suspect]
     Route: 042
  2. CISPLATIN [Suspect]
     Indication: OVARIAN CANCER
     Route: 042
  3. ETHYOL [Suspect]
     Route: 042

REACTIONS (9)
  - DEAFNESS NEUROSENSORY [None]
  - DRUG INEFFECTIVE [None]
  - MALIGNANT NEOPLASM PROGRESSION [None]
  - NEPHROPATHY TOXIC [None]
  - NEUROTOXICITY [None]
  - OTOTOXICITY [None]
  - PERIPHERAL SENSORY NEUROPATHY [None]
  - RENAL FAILURE [None]
  - RENAL TUBULAR NECROSIS [None]
